FAERS Safety Report 6955330 (Version 5)
Quarter: 2013Q1

REPORT INFORMATION
  Report Type: Spontaneous
  Country: US (occurrence: US)
  Receive Date: 20090330
  Receipt Date: 20130308
  Transmission Date: 20140127
  Serious: Yes (Other)
  Sender: FDA-Public Use
  Company Number: US-ROCHE-552276

PATIENT
  Age: 20 Year
  Sex: Female
  Weight: 79.4 kg

DRUGS (3)
  1. ACCUTANE [Suspect]
     Indication: ACNE CYSTIC
     Route: 048
     Dates: start: 20000406, end: 20000720
  2. ACCUTANE [Suspect]
     Route: 048
     Dates: start: 20000721, end: 20000731
  3. ACCUTANE [Suspect]
     Route: 048
     Dates: start: 20000801, end: 20000924

REACTIONS (11)
  - Inflammatory bowel disease [Unknown]
  - Colitis ulcerative [Unknown]
  - Depression [Unknown]
  - Anxiety [Unknown]
  - Suicidal ideation [Unknown]
  - Arthralgia [Recovered/Resolved]
  - Lip dry [Not Recovered/Not Resolved]
  - Myalgia [Recovered/Resolved]
  - Dry eye [Not Recovered/Not Resolved]
  - Visual impairment [Recovered/Resolved]
  - Nasal dryness [Unknown]
